FAERS Safety Report 17488728 (Version 1)
Quarter: 2020Q1

REPORT INFORMATION
  Report Type: Spontaneous
  Country: US (occurrence: US)
  Receive Date: 20200221
  Receipt Date: 20200221
  Transmission Date: 20200409
  Serious: Yes (Hospitalization)
  Sender: FDA-Public Use
  Company Number: None

PATIENT
  Age: 30 Year
  Sex: Female

DRUGS (2)
  1. PULMOZYME [Suspect]
     Active Substance: DORNASE ALFA
     Indication: CYSTIC FIBROSIS
     Dosage: ?          OTHER STRENGTH:1MG/1ML;OTHER DOSE:1MG/1ML;?
     Route: 055
     Dates: start: 20161216
  2. TRIKAFTA [Suspect]
     Active Substance: ELEXACAFTOR\IVACAFTOR\TEZACAFTOR
     Indication: CYSTIC FIBROSIS
     Dosage: ?          OTHER DOSE:100/50/75/150 MG;OTHER FREQUENCY:2QAM+1QPM;?
     Route: 048
     Dates: start: 20191211

REACTIONS (5)
  - Vomiting [None]
  - Decreased appetite [None]
  - Back pain [None]
  - Product dose omission [None]
  - Nausea [None]
